FAERS Safety Report 6844512-X (Version None)
Quarter: 2010Q3

REPORT INFORMATION
  Report Type: 
  Country: None (occurrence: None)
  Receive Date: 20100715
  Receipt Date: 20100708
  Transmission Date: 20110219
  Serious: Yes (Other)
  Sender: FDA-Public Use
  Company Number: CHPA2010US11103

PATIENT
  Age: 43 Year
  Sex: Male
  Weight: 95.238 kg

DRUGS (1)
  1. LAMISIL AT CONTINUOUS SPRAY, JOCK ITCH (NCH) [Suspect]
     Indication: TINEA CRURIS
     Dosage: UNK, BID
     Route: 061
     Dates: start: 20100705

REACTIONS (3)
  - APPLICATION SITE BURN [None]
  - BURNING SENSATION [None]
  - OVERDOSE [None]
